FAERS Safety Report 8460706-4 (Version None)
Quarter: 2012Q2

REPORT INFORMATION
  Report Type: 
  Country: None (occurrence: None)
  Receive Date: 20120622
  Receipt Date: 20120618
  Transmission Date: 20120825
  Serious: Yes (Hospitalization)
  Sender: FDA-Public Use
  Company Number: US-BAXTER-2012BAX007926

PATIENT
  Sex: Male

DRUGS (4)
  1. EXTRANEAL [Suspect]
     Route: 033
  2. DIANEAL [Suspect]
     Route: 033
  3. DIANEAL [Suspect]
     Route: 033
  4. DIANEAL [Suspect]
     Route: 033

REACTIONS (4)
  - PERITONEAL DIALYSIS COMPLICATION [None]
  - MALAISE [None]
  - PERITONITIS [None]
  - PYREXIA [None]
